FAERS Safety Report 9475508 (Version 4)
Quarter: 2013Q4

REPORT INFORMATION
  Report Type: Spontaneous
  Country: DE (occurrence: DE)
  Receive Date: 20130826
  Receipt Date: 20131126
  Transmission Date: 20140711
  Serious: Yes (Life-Threatening, Hospitalization)
  Sender: FDA-Public Use
  Company Number: DE-BRISTOL-MYERS SQUIBB COMPANY-19193473

PATIENT
  Age: 58 Year
  Sex: Male

DRUGS (8)
  1. BYDUREON [Suspect]
     Indication: TYPE 2 DIABETES MELLITUS
     Dates: start: 20111010, end: 201304
  2. BYETTA PEN DISPOSABLE [Suspect]
     Indication: TYPE 2 DIABETES MELLITUS
     Route: 058
     Dates: start: 20100802, end: 20111010
  3. METFORMIN [Concomitant]
  4. ALLOPURINOL [Concomitant]
  5. VALSARTAN [Concomitant]
  6. BISOPROLOL [Concomitant]
  7. ASS 100 [Concomitant]
  8. GABAPENTIN [Concomitant]

REACTIONS (1)
  - Colon cancer metastatic [Unknown]
